FAERS Safety Report 6907020-3 (Version None)
Quarter: 2010Q3

REPORT INFORMATION
  Report Type: 
  Country: None (occurrence: None)
  Receive Date: 20100804
  Receipt Date: 20080402
  Transmission Date: 20110219
  Serious: No
  Sender: FDA-Public Use
  Company Number: US-PFIZER INC-2008029788

PATIENT
  Sex: Male

DRUGS (5)
  1. SELZENTRY [Suspect]
  2. ENFUVIRTIDE [Concomitant]
  3. NORVIR [Concomitant]
  4. AZT [Concomitant]
  5. PREZISTA [Concomitant]

REACTIONS (2)
  - ACTIVITIES OF DAILY LIVING IMPAIRED [None]
  - PALPITATIONS [None]
